FAERS Safety Report 16859977 (Version 2)
Quarter: 2021Q4

REPORT INFORMATION
  Report Type: Other
  Country: US (occurrence: None)
  Receive Date: 20190927
  Receipt Date: 20211229
  Transmission Date: 20220303
  Serious: Yes (Death)
  Sender: FDA-Public Use
  Company Number: US-ROCHE-2413986

PATIENT
  Age: 73 Year
  Sex: Female

DRUGS (14)
  1. ESBRIET [Suspect]
     Active Substance: PIRFENIDONE
     Indication: Osteoarthritis
     Route: 065
  2. XOLAIR [Suspect]
     Active Substance: OMALIZUMAB
     Indication: Asthma
     Route: 058
  3. XOLAIR [Suspect]
     Active Substance: OMALIZUMAB
  4. XOLAIR [Suspect]
     Active Substance: OMALIZUMAB
  5. LANSOPRAZOLE [Concomitant]
     Active Substance: LANSOPRAZOLE
  6. DULERA [Concomitant]
     Active Substance: FORMOTEROL FUMARATE DIHYDRATE\MOMETASONE FUROATE
  7. SINGULAIR [Concomitant]
     Active Substance: MONTELUKAST SODIUM
  8. ATORVASTATIN [Concomitant]
     Active Substance: ATORVASTATIN
  9. VITAMIN B12 [Concomitant]
     Active Substance: CYANOCOBALAMIN
  10. CITALOPRAM [Concomitant]
     Active Substance: CITALOPRAM HYDROBROMIDE
  11. GABAPENTIN [Concomitant]
     Active Substance: GABAPENTIN
  12. METHOCARBAMOL [Concomitant]
     Active Substance: METHOCARBAMOL
  13. PREDNISONE [Concomitant]
     Active Substance: PREDNISONE
  14. SYMBICORT [Concomitant]
     Active Substance: BUDESONIDE\FORMOTEROL FUMARATE DIHYDRATE

REACTIONS (2)
  - Death [Fatal]
  - Off label use [Unknown]

NARRATIVE: CASE EVENT DATE: 20190901
